FAERS Safety Report 20721568 (Version 2)
Quarter: 2022Q2

REPORT INFORMATION
  Report Type: Other
  Country: US (occurrence: None)
  Receive Date: 20220418
  Receipt Date: 20220523
  Transmission Date: 20220721
  Serious: No
  Sender: FDA-Public Use
  Company Number: US-ROCHE-3076818

PATIENT
  Sex: Female

DRUGS (1)
  1. OCREVUS [Suspect]
     Active Substance: OCRELIZUMAB
     Indication: Multiple sclerosis
     Dosage: ANTICIPATED DATE OF NEXT TREATMENT 15/JAN/2021?DATE OF TREATMENT: 04/AUG/2021; 22/JAN/2021
     Route: 042

REACTIONS (1)
  - COVID-19 [Not Recovered/Not Resolved]
